FAERS Safety Report 11937555 (Version 1)
Quarter: 2016Q1

REPORT INFORMATION
  Report Type: Spontaneous
  Country: US (occurrence: US)
  Receive Date: 20160122
  Receipt Date: 20160122
  Transmission Date: 20160526
  Serious: No
  Sender: FDA-Public Use
  Company Number: US-BRISTOL-MYERS SQUIBB COMPANY-BMS-2016-003474

PATIENT
  Age: 15 Year
  Sex: Male

DRUGS (1)
  1. ABILIFY [Suspect]
     Active Substance: ARIPIPRAZOLE
     Indication: FEELING OF RELAXATION
     Dosage: 15 MG, QD
     Route: 048

REACTIONS (3)
  - Adverse event [Unknown]
  - Off label use [Unknown]
  - Drug dose omission [Unknown]
